FAERS Safety Report 4361368-8 (Version None)
Quarter: 2004Q2

REPORT INFORMATION
  Report Type: 
  Country: None (occurrence: None)
  Receive Date: 20040517
  Receipt Date: 20040503
  Transmission Date: 20050107
  Serious: Yes (Hospitalization)
  Sender: FDA-Public Use
  Company Number: 04P-163-0259373-00

PATIENT
  Age: 62 Year
  Sex: Female
  Weight: 72.5755 kg

DRUGS (7)
  1. HUMIRA [Suspect]
     Indication: RHEUMATOID ARTHRITIS
     Dosage: 40 MG, 1 IN 2 WK, SUBCUTANEOUS
     Route: 058
     Dates: start: 20040420, end: 20040429
  2. ESOMEPRAZOLE [Concomitant]
  3. CONJUGATED ESTROGEN [Concomitant]
  4. TRAMADOL HYDROCHLORIDE [Concomitant]
  5. IMIPRAMINE [Concomitant]
  6. PREDNISONE [Concomitant]
  7. HYDROXYCHLOROQUINE PHOSPHATE [Concomitant]

REACTIONS (4)
  - CONDITION AGGRAVATED [None]
  - INJECTION SITE ERYTHEMA [None]
  - INJECTION SITE RASH [None]
  - PANCREATITIS [None]
